FAERS Safety Report 9803581 (Version 1)
Quarter: 2014Q1

REPORT INFORMATION
  Report Type: Spontaneous
  Country: US (occurrence: US)
  Receive Date: 20140108
  Receipt Date: 20140108
  Transmission Date: 20141002
  Serious: No
  Sender: FDA-Public Use
  Company Number: US-GLAXOSMITHKLINE-A1009476A

PATIENT
  Age: 80 Year
  Sex: Male

DRUGS (7)
  1. LOVAZA [Suspect]
     Indication: BLOOD TRIGLYCERIDES INCREASED
     Dosage: 2G TWICE PER DAY
     Route: 048
     Dates: start: 20130116
  2. PRESERVISION [Concomitant]
  3. LISINOPRIL [Concomitant]
  4. NORVASC [Concomitant]
  5. PRAVASTATIN [Concomitant]
  6. METFORMIN [Concomitant]
  7. GLYBURIDE [Concomitant]

REACTIONS (3)
  - Eructation [Not Recovered/Not Resolved]
  - Dysgeusia [Not Recovered/Not Resolved]
  - Breath odour [Not Recovered/Not Resolved]
